FAERS Safety Report 11129340 (Version 2)
Quarter: 2015Q2

REPORT INFORMATION
  Report Type: Spontaneous
  Country: US (occurrence: US)
  Receive Date: 20150521
  Receipt Date: 20150527
  Transmission Date: 20150821
  Serious: No
  Sender: FDA-Public Use
  Company Number: US-PFIZER INC-2015171463

PATIENT
  Age: 57 Year
  Sex: Female
  Weight: 73 kg

DRUGS (2)
  1. PRISTIQ EXTENDED RELEASE [Suspect]
     Active Substance: DESVENLAFAXINE SUCCINATE
     Indication: DEPRESSION
  2. PRISTIQ EXTENDED RELEASE [Suspect]
     Active Substance: DESVENLAFAXINE SUCCINATE
     Indication: HYPERHIDROSIS
     Dosage: 50 MG, 1X/DAY
     Route: 048
     Dates: start: 20150402

REACTIONS (1)
  - Thought blocking [Unknown]

NARRATIVE: CASE EVENT DATE: 20150518
